FAERS Safety Report 7190042-8 (Version None)
Quarter: 2010Q4

REPORT INFORMATION
  Report Type: 
  Country: None (occurrence: None)
  Receive Date: 20101223
  Receipt Date: 20101214
  Transmission Date: 20110411
  Serious: Yes (Hospitalization)
  Sender: FDA-Public Use
  Company Number: US-JNJFOC-20101000216

PATIENT
  Sex: Female
  Weight: 46.27 kg

DRUGS (5)
  1. REMICADE [Suspect]
     Indication: CROHN'S DISEASE
     Route: 042
  2. ANTICOAGULANTS [Concomitant]
  3. ANTIHISTAMINES [Concomitant]
     Indication: PREMEDICATION
  4. ACETAMINOPHEN [Concomitant]
     Indication: PREMEDICATION
  5. STEROIDS NOS [Concomitant]
     Indication: PREMEDICATION

REACTIONS (9)
  - CANDIDIASIS [None]
  - HEADACHE [None]
  - HYPOTENSION [None]
  - INTERNATIONAL NORMALISED RATIO INCREASED [None]
  - MEDICAL DEVICE COMPLICATION [None]
  - PANCREATITIS [None]
  - PSEUDOMONAS INFECTION [None]
  - SEPSIS [None]
  - STAPHYLOCOCCAL INFECTION [None]
